FAERS Safety Report 21000034 (Version 1)
Quarter: 2022Q2

REPORT INFORMATION
  Report Type: Report from Study
  Country: US (occurrence: US)
  Receive Date: 20220623
  Receipt Date: 20220623
  Transmission Date: 20220721
  Serious: Yes (Other)
  Sender: FDA-Public Use
  Company Number: US-TAKEDA-2022TUS025986

PATIENT
  Age: 60 Year
  Sex: Male

DRUGS (4)
  1. TEDUGLUTIDE [Suspect]
     Active Substance: TEDUGLUTIDE
     Indication: Short-bowel syndrome
     Dosage: 0.420 MILLILITER, QD
     Route: 050
     Dates: start: 20190303
  2. TEDUGLUTIDE [Suspect]
     Active Substance: TEDUGLUTIDE
     Indication: Short-bowel syndrome
     Dosage: 0.420 MILLILITER, QD
     Route: 050
     Dates: start: 20190303
  3. TEDUGLUTIDE [Suspect]
     Active Substance: TEDUGLUTIDE
     Indication: Short-bowel syndrome
     Dosage: 0.420 MILLILITER, QD
     Route: 050
     Dates: start: 20190303
  4. TEDUGLUTIDE [Suspect]
     Active Substance: TEDUGLUTIDE
     Indication: Short-bowel syndrome
     Dosage: 0.420 MILLILITER, QD
     Route: 050
     Dates: start: 20190303

REACTIONS (8)
  - Post procedural inflammation [Unknown]
  - Anorectal disorder [Unknown]
  - Weight decreased [Unknown]
  - Colitis [Unknown]
  - Gastrointestinal disorder [Unknown]
  - Ischaemia [Unknown]
  - Discomfort [Unknown]
  - Inappropriate schedule of product administration [Unknown]

NARRATIVE: CASE EVENT DATE: 20220301
